FAERS Safety Report 9234562 (Version 2)
Quarter: 2013Q2

REPORT INFORMATION
  Report Type: Spontaneous
  Country: US (occurrence: US)
  Receive Date: 20130416
  Receipt Date: 20130509
  Transmission Date: 20140414
  Serious: No
  Sender: FDA-Public Use
  Company Number: US-PFIZER INC-2013115214

PATIENT
  Age: 78 Year
  Sex: Male

DRUGS (1)
  1. INLYTA [Suspect]
     Indication: RENAL CANCER
     Dosage: 5 MG, 1X/DAY (REPORTED AS 5MG DAILY)
     Route: 048
     Dates: start: 20130117, end: 20130410

REACTIONS (2)
  - Disease progression [Unknown]
  - Renal cancer [Unknown]
